FAERS Safety Report 13630423 (Version 1)
Quarter: 2017Q2

REPORT INFORMATION
  Report Type: Spontaneous
  Country: US (occurrence: US)
  Receive Date: 20170531
  Receipt Date: 20170531
  Transmission Date: 20170830
  Serious: No
  Sender: FDA-Public Use
  Company Number: US-ASTELLAS-1301263

PATIENT
  Sex: Male

DRUGS (10)
  1. PRILOSEC [Concomitant]
     Active Substance: OMEPRAZOLE MAGNESIUM
  2. FOLIC ACID. [Concomitant]
     Active Substance: FOLIC ACID
  3. ALLEGRA [Concomitant]
     Active Substance: FEXOFENADINE HYDROCHLORIDE
  4. TARCEVA [Suspect]
     Active Substance: ERLOTINIB HYDROCHLORIDE
     Route: 048
     Dates: start: 20131030
  5. LIPITOR [Concomitant]
     Active Substance: ATORVASTATIN CALCIUM
  6. NIACIN. [Concomitant]
     Active Substance: NIACIN
  7. TARCEVA [Suspect]
     Active Substance: ERLOTINIB HYDROCHLORIDE
     Indication: LUNG NEOPLASM MALIGNANT
     Route: 048
     Dates: start: 20131027, end: 20140116
  8. ALDOSTERONE [Concomitant]
     Active Substance: ALDOSTERONE
  9. ONDANSETRON [Concomitant]
     Active Substance: ONDANSETRON
  10. ASPIRIN. [Concomitant]
     Active Substance: ASPIRIN

REACTIONS (2)
  - Rash [Unknown]
  - Diarrhoea [Unknown]
